FAERS Safety Report 5207032-4 (Version None)
Quarter: 2007Q1

REPORT INFORMATION
  Report Type: 
  Country: None (occurrence: None)
  Receive Date: 20070110
  Receipt Date: 20070101
  Transmission Date: 20070707
  Serious: Yes (Hospitalization)
  Sender: FDA-Public Use
  Company Number: GXKR2007US00451

PATIENT
  Age: 15 Year
  Sex: Female

DRUGS (1)
  1. METRONIDAZOLE [Suspect]
     Indication: VAGINAL INFECTION

REACTIONS (7)
  - AUTONOMIC NEUROPATHY [None]
  - DIARRHOEA [None]
  - ERYTHEMA [None]
  - HYPERAESTHESIA [None]
  - OEDEMA PERIPHERAL [None]
  - PERIPHERAL SENSORIMOTOR NEUROPATHY [None]
  - PITTING OEDEMA [None]
